FAERS Safety Report 10661678 (Version 2)
Quarter: 2015Q1

REPORT INFORMATION
  Report Type: Spontaneous
  Country: US (occurrence: None)
  Receive Date: 20141216
  Receipt Date: 20150226
  Transmission Date: 20150720
  Serious: Yes (Other)
  Sender: FDA-Public Use
  Company Number: OBS317

PATIENT
  Age: 56 Year
  Sex: Female

DRUGS (1)
  1. ALENDRONATE [Suspect]
     Active Substance: ALENDRONATE SODIUM
     Indication: OSTEOPOROSIS
     Dosage: 1, WEEKLY, ORAL; TOOK DRUG FOR 5-6 YEARS
     Route: 048

REACTIONS (7)
  - Dyspnoea [None]
  - Oropharyngeal pain [None]
  - Drooling [None]
  - Throat irritation [None]
  - Speech disorder [None]
  - Foreign body [None]
  - Cough [None]

NARRATIVE: CASE EVENT DATE: 20140812
